FAERS Safety Report 4532507-0 (Version None)
Quarter: 2004Q4

REPORT INFORMATION
  Report Type: 
  Country: None (occurrence: None)
  Receive Date: 20041206
  Receipt Date: 20040917
  Transmission Date: 20050328
  Serious: No
  Sender: FDA-Public Use
  Company Number: USA040978715

PATIENT
  Age: 70 Year
  Sex: Female
  Weight: 70 kg

DRUGS (3)
  1. CYMBALTA [Suspect]
     Indication: DEPRESSION
     Dosage: 30 MG DAY
     Dates: start: 20040915
  2. PAXIL [Concomitant]
  3. HIGH BLOOD PRESSURE MEDICINE [Concomitant]

REACTIONS (2)
  - DIZZINESS [None]
  - MUSCLE TWITCHING [None]
